FAERS Safety Report 11650531 (Version 1)
Quarter: 2015Q4

REPORT INFORMATION
  Report Type: Spontaneous
  Country: US (occurrence: US)
  Receive Date: 20151021
  Receipt Date: 20151021
  Transmission Date: 20160304
  Serious: Yes (Hospitalization)
  Sender: FDA-Public Use
  Company Number: US-LUNDBECK-DKLU2005392

PATIENT
  Age: 14 Year
  Sex: Male
  Weight: 40 kg

DRUGS (4)
  1. BANZEL [Suspect]
     Active Substance: RUFINAMIDE
     Indication: PRODUCT USED FOR UNKNOWN INDICATION
     Route: 065
  2. ONFI [Suspect]
     Active Substance: CLOBAZAM
     Indication: PRODUCT USED FOR UNKNOWN INDICATION
     Route: 065
  3. GABAPENTIN. [Suspect]
     Active Substance: GABAPENTIN
     Route: 065
     Dates: start: 2015
  4. GABAPENTIN. [Suspect]
     Active Substance: GABAPENTIN
     Indication: PRODUCT USED FOR UNKNOWN INDICATION
     Route: 065
     Dates: start: 2015

REACTIONS (14)
  - Trichotillomania [Recovering/Resolving]
  - Constipation [Recovering/Resolving]
  - Drug interaction [Unknown]
  - Self injurious behaviour [Recovering/Resolving]
  - Hypersomnia [Recovering/Resolving]
  - Anxiety [Recovering/Resolving]
  - Headache [Recovering/Resolving]
  - Anuria [Recovering/Resolving]
  - Coordination abnormal [Recovering/Resolving]
  - Heart rate irregular [Unknown]
  - Dizziness [Recovering/Resolving]
  - Abasia [Recovering/Resolving]
  - Vomiting [Recovering/Resolving]
  - Decreased appetite [Recovering/Resolving]

NARRATIVE: CASE EVENT DATE: 20150527
